FAERS Safety Report 8322181-X (Version None)
Quarter: 2012Q2

REPORT INFORMATION
  Report Type: 
  Country: None (occurrence: None)
  Receive Date: 20120430
  Receipt Date: 20090119
  Transmission Date: 20120825
  Serious: Yes (Hospitalization)
  Sender: FDA-Public Use
  Company Number: FR-ROCHE-610240

PATIENT
  Age: 58 Year
  Sex: Male

DRUGS (4)
  1. IRINOTECAN HCL [Suspect]
     Indication: COLON CANCER
     Dosage: DOSAGE REGIMEN: 430 MG AT D4.
     Route: 042
  2. XELODA [Suspect]
     Dosage: DRUG REINTRODUCED
     Route: 048
  3. XELODA [Suspect]
     Indication: COLON CANCER
     Dosage: 1.5 G TWICE DAILY PER DAY DURING 14 DAYS.
     Route: 048
  4. AVASTIN [Suspect]
     Indication: COLON CANCER
     Dosage: DOSAGE : 700 MG AT D4.
     Route: 042

REACTIONS (2)
  - FEBRILE BONE MARROW APLASIA [None]
  - PYREXIA [None]
